FAERS Safety Report 16931879 (Version 4)
Quarter: 2019Q4

REPORT INFORMATION
  Report Type: Report from Study
  Country: US (occurrence: US)
  Receive Date: 20191017
  Receipt Date: 20191206
  Transmission Date: 20200122
  Serious: Yes (Hospitalization, Other)
  Sender: FDA-Public Use
  Company Number: US-GLAXOSMITHKLINE-2019-TSO02752-US

PATIENT
  Sex: Female

DRUGS (4)
  1. NIRAPARIB [Suspect]
     Active Substance: NIRAPARIB
     Indication: BRONCHIAL CARCINOMA
     Dosage: 200 MG, ONE IN THE MORNING AND ONE AT NIGHT
     Route: 048
     Dates: start: 20190722
  2. NIRAPARIB [Suspect]
     Active Substance: NIRAPARIB
     Dosage: 100 MG, QD
     Route: 048
     Dates: end: 20191113
  3. NIRAPARIB [Suspect]
     Active Substance: NIRAPARIB
     Dosage: 100 MG, QD
     Route: 048
     Dates: start: 20191115
  4. NIRAPARIB [Suspect]
     Active Substance: NIRAPARIB
     Dosage: 100 MG, QD (PM WITHOUT FOOD)
     Route: 048
     Dates: start: 20190820

REACTIONS (16)
  - Cystitis [Unknown]
  - White blood cell count increased [Unknown]
  - Decreased appetite [Recovering/Resolving]
  - Product use in unapproved indication [Unknown]
  - Blood pressure fluctuation [Unknown]
  - Diarrhoea [Unknown]
  - Blood pressure decreased [Unknown]
  - Loss of personal independence in daily activities [Unknown]
  - Blood urine present [Unknown]
  - Inappropriate schedule of product administration [Unknown]
  - Dizziness [Not Recovered/Not Resolved]
  - Dysuria [Not Recovered/Not Resolved]
  - Constipation [Not Recovered/Not Resolved]
  - Confusional state [Unknown]
  - Pulmonary embolism [Unknown]
  - Alopecia [Unknown]
